FAERS Safety Report 5359588-9 (Version None)
Quarter: 2007Q2

REPORT INFORMATION
  Report Type: 
  Country: None (occurrence: None)
  Receive Date: 20070530
  Receipt Date: 20061013
  Transmission Date: 20071010
  Serious: Yes (Hospitalization)
  Sender: FDA-Public Use
  Company Number: US200606003307

PATIENT
  Sex: Male
  Weight: 95.2 kg

DRUGS (2)
  1. ZYPREXA [Suspect]
     Dosage: 10 MG, DAILY (1/D)
     Dates: start: 19990101, end: 20040101
  2. INSULIN [Concomitant]

REACTIONS (3)
  - ACCIDENT [None]
  - COMA [None]
  - DIABETES MELLITUS [None]
